FAERS Safety Report 9380514 (Version 2)
Quarter: 2013Q3

REPORT INFORMATION
  Report Type: Report from Study
  Country: US (occurrence: US)
  Receive Date: 20130702
  Receipt Date: 20130724
  Transmission Date: 20140515
  Serious: Yes (Other)
  Sender: FDA-Public Use
  Company Number: US-VERTEX PHARMACEUTICALS INC-2013-007642

PATIENT
  Age: 48 Year
  Sex: Female
  Weight: 78.91 kg

DRUGS (8)
  1. VX-950 (TELAPREVIR) [Suspect]
     Indication: HEPATITIS C
     Dosage: UNK
     Route: 048
     Dates: start: 20121019, end: 20130111
  2. PEGASYS [Suspect]
     Indication: HEPATITIS C
     Dosage: 180 ?G, QW
     Dates: start: 20121019
  3. RIBAVIRIN [Suspect]
     Indication: HEPATITIS C
     Dosage: 200 UNK, BID
     Dates: start: 20121019
  4. LASIX [Concomitant]
  5. SYNTHROID [Concomitant]
  6. MS CONTIN [Concomitant]
  7. NEVOTIC [Concomitant]
  8. RANTUDIL [Concomitant]

REACTIONS (3)
  - Stomatitis [Not Recovered/Not Resolved]
  - Cheilitis [Not Recovered/Not Resolved]
  - Aphthous stomatitis [Unknown]
